FAERS Safety Report 5470687-3 (Version None)
Quarter: 2007Q3

REPORT INFORMATION
  Report Type: 
  Country: None (occurrence: None)
  Receive Date: 20070820
  Receipt Date: 20070511
  Transmission Date: 20080115
  Serious: No
  Sender: FDA-Public Use
  Company Number: WAES 0705USA02465

PATIENT
  Age: 65 Year
  Sex: Female

DRUGS (18)
  1. JANUVIA [Suspect]
     Indication: DIABETES MELLITUS
     Dosage: 100 MG/DAILY/PO
     Route: 048
     Dates: start: 20070504
  2. ARMOUR THYROID TABLETS [Concomitant]
  3. ASTELIN [Concomitant]
  4. DIFLUCAN [Concomitant]
  5. DIOVAN [Concomitant]
  6. GLUCOPHAGE XR [Concomitant]
  7. HYDRODIURIL [Concomitant]
  8. LIPITOR [Concomitant]
  9. SINGULAIR [Concomitant]
  10. ZYRTEC [Concomitant]
  11. CALCIUM (UNSPECIFIED) [Concomitant]
  12. CYANOCOBALAMIN [Concomitant]
  13. ESTROGENS (UNSPECIFIED) [Concomitant]
  14. MAGNESIUM (UNSPECIFIED) [Concomitant]
  15. NYSTATIN [Concomitant]
  16. PROGESTERONE [Concomitant]
  17. VITAMIN D (UNSPECIFIED) [Concomitant]
  18. VITAMIN E [Concomitant]

REACTIONS (1)
  - UNINTENDED PREGNANCY [None]
